FAERS Safety Report 8041701-6 (Version None)
Quarter: 2012Q1

REPORT INFORMATION
  Report Type: 
  Country: None (occurrence: None)
  Receive Date: 20120112
  Receipt Date: 20120110
  Transmission Date: 20120608
  Serious: Yes (Hospitalization)
  Sender: FDA-Public Use
  Company Number: US-JNJFOC-2004061775

PATIENT
  Sex: Female
  Weight: 91.17 kg

DRUGS (3)
  1. SUDAFED 24 HOUR [Suspect]
     Route: 048
  2. SUDAFED 24 HOUR [Suspect]
     Indication: SINUSITIS
     Dosage: DAILY DOSE TEXT: 1 TAB QD
     Route: 048
     Dates: start: 20040101
  3. CLOPIDOGREL BISULFATE [Concomitant]
     Indication: CEREBROVASCULAR ACCIDENT
     Dosage: DAILY DOSE TEXT: 75 MG QD
     Route: 048
     Dates: start: 20030101

REACTIONS (1)
  - HEART RATE INCREASED [None]
